FAERS Safety Report 4320694-9 (Version None)
Quarter: 2004Q1

REPORT INFORMATION
  Report Type: 
  Country: None (occurrence: None)
  Receive Date: 20040315
  Receipt Date: 20040106
  Transmission Date: 20041129
  Serious: Yes (Hospitalization)
  Sender: FDA-Public Use
  Company Number: USA030844799

PATIENT
  Age: 49 Year
  Sex: Female
  Weight: 68 kg

DRUGS (3)
  1. GEMZAR [Suspect]
     Indication: PANCREATIC CARCINOMA METASTATIC
     Dosage: 750 MG/M2/WEEK
     Dates: start: 20030613
  2. 5-FU [Concomitant]
  3. RADIOTHERAPY [Concomitant]

REACTIONS (1)
  - RECALL PHENOMENON [None]
